FAERS Safety Report 18149547 (Version 1)
Quarter: 2020Q3

REPORT INFORMATION
  Report Type: Spontaneous
  Country: GB (occurrence: GB)
  Receive Date: 20200814
  Receipt Date: 20200814
  Transmission Date: 20201103
  Serious: Yes (Other)
  Sender: FDA-Public Use
  Company Number: GB-TEVA-2020-GB-1813633

PATIENT
  Age: 24 Year
  Sex: Male
  Weight: 68 kg

DRUGS (1)
  1. DUTASTERIDE. [Suspect]
     Active Substance: DUTASTERIDE
     Indication: ANDROGENETIC ALOPECIA
     Dosage: 5 MG
     Route: 048
     Dates: start: 20170831, end: 20200715

REACTIONS (4)
  - Muscle contractions involuntary [Not Recovered/Not Resolved]
  - Asthenia [Unknown]
  - Muscle twitching [Not Recovered/Not Resolved]
  - Intention tremor [Not Recovered/Not Resolved]

NARRATIVE: CASE EVENT DATE: 20170901
